FAERS Safety Report 8740145 (Version 2)
Quarter: 2012Q4

REPORT INFORMATION
  Report Type: Report from Study
  Country: US (occurrence: US)
  Receive Date: 20120904
  Receipt Date: 20121005
  Transmission Date: 20130627
  Serious: Yes (Hospitalization)
  Sender: FDA-Public Use
  Company Number: US-ROCHE-1089174

PATIENT
  Age: 63 Year
  Sex: Female
  Weight: 88.8 kg

DRUGS (22)
  1. MABTHERA [Suspect]
     Indication: RHEUMATOID ARTHRITIS
     Dosage: Courses of
     Route: 042
     Dates: start: 20120425, end: 20120510
  2. METHOTREXATE [Concomitant]
     Indication: RHEUMATOID ARTHRITIS
     Route: 048
     Dates: start: 20100208
  3. HALCION [Concomitant]
     Indication: INSOMNIA
     Dosage: 0.25
     Route: 065
     Dates: start: 20090908
  4. FOLIC ACID [Concomitant]
     Indication: PROPHYLAXIS
     Dosage: 1
     Route: 065
     Dates: start: 20060409
  5. RISPERDAL [Concomitant]
     Indication: INSOMNIA
     Dosage: 1.0
     Route: 065
     Dates: start: 20110328
  6. ZOVIRAX [Concomitant]
     Dosage: 800
     Route: 065
     Dates: start: 20100524
  7. AMITIZA [Concomitant]
     Indication: CONSTIPATION
     Dosage: 24
     Route: 065
     Dates: start: 20120327
  8. REQUIP [Concomitant]
     Indication: RESTLESS LEGS SYNDROME
     Dosage: 0.5
     Route: 065
     Dates: start: 20120327
  9. PREDNISONE [Concomitant]
     Indication: RHEUMATOID ARTHRITIS
     Dosage: 7.5
     Route: 065
     Dates: start: 20120416
  10. DEPO-MEDROL [Concomitant]
     Indication: RHEUMATOID ARTHRITIS
     Dosage: 80
     Route: 065
     Dates: start: 20120530, end: 20120530
  11. DEPO-MEDROL [Concomitant]
     Dosage: 20
     Route: 065
     Dates: start: 20120530, end: 20120530
  12. BUPIVACAINE [Concomitant]
     Indication: RHEUMATOID ARTHRITIS
     Dosage: 1
     Route: 065
     Dates: start: 20120530, end: 20120530
  13. BUPIVACAINE [Concomitant]
     Dosage: 0.25
     Route: 065
     Dates: start: 20120530, end: 20120530
  14. LORTAB [Concomitant]
     Indication: PAIN
     Dosage: 7.5
     Route: 065
     Dates: start: 20090818
  15. ASPIRIN [Concomitant]
     Indication: PROPHYLAXIS
     Dosage: 81
     Route: 065
     Dates: start: 20090210
  16. CRESTOR [Concomitant]
     Indication: HYPERLIPIDAEMIA
     Dosage: 20
     Route: 065
     Dates: start: 20041006
  17. ESTRACE [Concomitant]
     Dosage: 0.5
     Route: 065
     Dates: start: 20090908
  18. CALTRATE [Concomitant]
     Dosage: 1
     Route: 065
     Dates: start: 20100611
  19. PRILOSEC [Concomitant]
     Indication: DYSPEPSIA
     Dosage: 20
     Route: 065
     Dates: start: 20010814
  20. LEXAPRO [Concomitant]
     Indication: ANXIETY
     Dosage: 10
     Route: 065
     Dates: start: 20110131
  21. ZANAFLEX [Concomitant]
     Indication: SPINAL OSTEOARTHRITIS
     Dosage: 2
     Route: 065
     Dates: start: 20100611
  22. ZANAFLEX [Concomitant]
     Indication: SPINAL OSTEOARTHRITIS

REACTIONS (1)
  - Sepsis [Recovered/Resolved]
